FAERS Safety Report 23694952 (Version 1)
Quarter: 2024Q2

REPORT INFORMATION
  Report Type: Spontaneous
  Country: IT (occurrence: IT)
  Receive Date: 20240402
  Receipt Date: 20240402
  Transmission Date: 20240716
  Serious: Yes (Other)
  Sender: FDA-Public Use
  Company Number: IT-MINISAL02-963615

PATIENT
  Age: 34 Year
  Sex: Male

DRUGS (3)
  1. OXALIPLATIN [Suspect]
     Active Substance: OXALIPLATIN
     Indication: Colon cancer stage IV
     Dosage: EVERY 21 DAYS FROM 11.01.2022 TO 17.08.2022 AND FROM 16.11.2023 TO 07.12.2023
     Route: 040
     Dates: start: 20220111, end: 20231207
  2. CAPECITABINE [Concomitant]
     Active Substance: CAPECITABINE
     Indication: Colon cancer stage IV
     Dosage: 3000 MG/DAY FOR 14 DAYS EVERY 21 DAYS
     Route: 048
     Dates: start: 20231116
  3. NADROPARIN CALCIUM [Concomitant]
     Active Substance: NADROPARIN CALCIUM
     Indication: Product used for unknown indication
     Dosage: 0,6 ML/DIE
     Route: 065

REACTIONS (1)
  - Sensitisation [Recovered/Resolved]

NARRATIVE: CASE EVENT DATE: 20231207
